FAERS Safety Report 10038545 (Version 1)
Quarter: 2014Q1

REPORT INFORMATION
  Report Type: Spontaneous
  Country: US (occurrence: None)
  Receive Date: 20140306
  Receipt Date: 20140306
  Transmission Date: 20141002
  Serious: Yes (Hospitalization, Other)
  Sender: FDA-Public Use
  Company Number: 163-21880-13111731

PATIENT
  Age: 84 Year
  Sex: Female

DRUGS (18)
  1. REVLIMID (LENALIDOMIDE) (10 MILLIGRAM, CAPSULES) [Suspect]
     Indication: PLASMA CELL MYELOMA RECURRENT
     Dosage: 10 MG, 1 IN 1 HR, PO
     Route: 048
     Dates: start: 201206, end: 2012
  2. TYLENOL (PARACETAMOL) (TABLETS) [Concomitant]
  3. AMBIEN (ZOLPIDEM TARTRATE) (TABLETS) [Concomitant]
  4. CHILDREN^S ASPIRIN (ACETYLSALICYLIC ACID) (CHEWABLE TABLET) [Concomitant]
  5. BACTRIM DS (BACTRIM) (TABLETS) [Concomitant]
  6. CITRACAL + VITAMIN D3 (CITRACAL + D) (TABLETS) [Concomitant]
  7. PLAVIX (CLOPIDOGREL SULFATE) (TABLETS) [Concomitant]
  8. COREG (CARVEDILOL) [Concomitant]
  9. LISINOPROL (LISINOPRIL) TABLETS [Concomitant]
  10. LOVASTATIN (LOVASTATIN) (TABLETS) [Concomitant]
  11. MIRALAX (MACROGOL) [Concomitant]
  12. MULTIVITAMINS (MULTIVITAMINS) (TABLETS) [Concomitant]
  13. OMEPRAZOLE (OMEPRAZOLE) (CAPSULES) [Concomitant]
  14. OXYCODONE (OXYCODONE) (TABLETS) [Concomitant]
  15. SENOKOT (SENNA FRUIT) (TABLETS) [Concomitant]
  16. XANAX (ALPRAZOLAM) (TABLETS) [Concomitant]
  17. FUROSEMIDE (FUROSEMIDE) (TABLETS) [Concomitant]
  18. DEXAMETHASONE (DEXAMETHASONE) [Concomitant]

REACTIONS (1)
  - Cardiac failure [None]
